FAERS Safety Report 10550159 (Version 3)
Quarter: 2014Q4

REPORT INFORMATION
  Report Type: Spontaneous
  Country: JP (occurrence: JP)
  Receive Date: 20141028
  Receipt Date: 20141114
  Transmission Date: 20150529
  Serious: Yes (Other)
  Sender: FDA-Public Use
  Company Number: JP-PFIZER INC-2014293872

PATIENT
  Age: 55 Year
  Sex: Male

DRUGS (9)
  1. LYRICA [Suspect]
     Active Substance: PREGABALIN
     Dosage: UNK, 2X/DAY
     Route: 048
     Dates: end: 20141021
  2. SILECE [Concomitant]
     Active Substance: FLUNITRAZEPAM
     Dosage: 2 MG, DAILY
  3. ABILIFY [Concomitant]
     Active Substance: ARIPIPRAZOLE
     Dosage: 38 MG, DAILY
     Route: 048
  4. LYRICA [Suspect]
     Active Substance: PREGABALIN
     Dosage: 200 MG, 1X/DAY (BEFORE SLEEP)
     Route: 048
  5. SEROQUEL [Suspect]
     Active Substance: QUETIAPINE FUMARATE
     Dosage: 500 MG, DAILY
     Route: 048
     Dates: end: 20141014
  6. SEROQUEL [Suspect]
     Active Substance: QUETIAPINE FUMARATE
     Dosage: 1000 MG, DAILY
     Route: 048
     Dates: start: 20141015, end: 20141017
  7. MYSLEE [Concomitant]
     Active Substance: ZOLPIDEM TARTRATE
     Dosage: 10 MG, DAILY
     Route: 048
  8. TRAZODONE [Concomitant]
     Active Substance: TRAZODONE HYDROCHLORIDE
     Dosage: 25 MG, DAILY
     Route: 048
  9. ROZEREM [Concomitant]
     Active Substance: RAMELTEON
     Dosage: 8 MG, DAILY
     Route: 048

REACTIONS (3)
  - Neurological symptom [Recovered/Resolved]
  - Somnolence [Recovered/Resolved]
  - Gaze palsy [Recovered/Resolved]

NARRATIVE: CASE EVENT DATE: 20141021
